FAERS Safety Report 22656346 (Version 1)
Quarter: 2023Q2

REPORT INFORMATION
  Report Type: Spontaneous
  Country: QA (occurrence: QA)
  Receive Date: 20230629
  Receipt Date: 20230629
  Transmission Date: 20230721
  Serious: Yes (Other)
  Sender: FDA-Public Use
  Company Number: QA-BRISTOL-MYERS SQUIBB COMPANY-2023-090689

PATIENT
  Age: 51 Year
  Sex: Male

DRUGS (1)
  1. DASATINIB [Suspect]
     Active Substance: DASATINIB
     Indication: B-cell type acute leukaemia
     Route: 048

REACTIONS (1)
  - Chylothorax [Recovered/Resolved]

NARRATIVE: CASE EVENT DATE: 20210201
